FAERS Safety Report 5162005-5 (Version None)
Quarter: 2006Q4

REPORT INFORMATION
  Report Type: 
  Country: None (occurrence: None)
  Receive Date: 20061121
  Receipt Date: 20061110
  Transmission Date: 20070319
  Serious: Yes (Hospitalization, Other)
  Sender: FDA-Public Use
  Company Number: 2006-296

PATIENT
  Age: 82 Year
  Sex: Male

DRUGS (5)
  1. CIPROFLOXACIN [Suspect]
     Indication: URINARY TRACT INFECTION
     Dosage: 250 MG (2/DAY)
     Dates: start: 20061014, end: 20061016
  2. AMILODIPINE [Concomitant]
  3. ENALAPRIL MALEATE [Concomitant]
  4. METOCLOPRAMIDE [Concomitant]
  5. OMEPRAZOLE [Concomitant]

REACTIONS (1)
  - HEPATITIS [None]
